FAERS Safety Report 4775710-7 (Version None)
Quarter: 2005Q3

REPORT INFORMATION
  Report Type: 
  Country: None (occurrence: None)
  Receive Date: 20050922
  Receipt Date: 20050912
  Transmission Date: 20060218
  Serious: Yes (Hospitalization)
  Sender: FDA-Public Use
  Company Number: PHHO2005MX14497

PATIENT
  Age: 22 Year
  Sex: Male

DRUGS (1)
  1. ZELMAC / HTF 919A [Suspect]
     Indication: GALLBLADDER DISORDER
     Dosage: 6 MG, UNK
     Route: 048
     Dates: start: 20050803

REACTIONS (4)
  - CHOLECYSTECTOMY [None]
  - GALLBLADDER DISORDER [None]
  - OEDEMA PERIPHERAL [None]
  - PAIN IN EXTREMITY [None]
